FAERS Safety Report 6807875-7 (Version None)
Quarter: 2010Q2

REPORT INFORMATION
  Report Type: 
  Country: None (occurrence: None)
  Receive Date: 20100629
  Receipt Date: 20090302
  Transmission Date: 20101027
  Serious: No
  Sender: FDA-Public Use
  Company Number: US-PFIZER INC-2009159557

PATIENT
  Sex: Female
  Weight: 58.5 kg

DRUGS (4)
  1. SOLU-CORTEF [Suspect]
     Dosage: 50 MG, UNK
     Route: 030
     Dates: start: 20081230
  2. HYDROCORTISONE [Suspect]
     Indication: ADRENAL INSUFFICIENCY
  3. PROMETHAZINE HYDROCHLORIDE [Concomitant]
     Dosage: UNK
  4. SANDOSTATIN [Concomitant]
     Dosage: UNK
     Route: 058

REACTIONS (6)
  - ASTHENIA [None]
  - DIARRHOEA [None]
  - INCORRECT DOSE ADMINISTERED [None]
  - INCORRECT ROUTE OF DRUG ADMINISTRATION [None]
  - MEDICATION RESIDUE [None]
  - NAUSEA [None]
